FAERS Safety Report 4564277-4 (Version None)
Quarter: 2005Q1

REPORT INFORMATION
  Report Type: 
  Country: None (occurrence: None)
  Receive Date: 20050126
  Receipt Date: 20050119
  Transmission Date: 20050727
  Serious: Yes (Hospitalization)
  Sender: FDA-Public Use
  Company Number: 2005-01-1130

PATIENT
  Age: 41 Year
  Sex: Female

DRUGS (4)
  1. CLARINEX [Suspect]
     Dosage: 1 TAB QD ORAL
     Route: 048
     Dates: end: 20041118
  2. ZOLOFT [Suspect]
     Dosage: 1 TAB QD ORAL
     Route: 048
     Dates: end: 20041118
  3. SYMBICORT (BUDESONIDE/FORMOTEROL) POWDER AEROSOL [Suspect]
     Dosage: 2 DOSES QD AERO-INHALATI
     Route: 055
     Dates: end: 20041118
  4. IDBENONE TABLETS [Suspect]
     Dosage: 3 DOSES QD ORAL
     Route: 048
     Dates: end: 20041118

REACTIONS (3)
  - CONFUSIONAL STATE [None]
  - DELUSION [None]
  - SOMNOLENCE [None]
